FAERS Safety Report 5573258-3 (Version None)
Quarter: 2007Q4

REPORT INFORMATION
  Report Type: 
  Country: None (occurrence: None)
  Receive Date: 20071220
  Receipt Date: 20071211
  Transmission Date: 20080405
  Serious: Yes (Other)
  Sender: FDA-Public Use
  Company Number: ALK_00490_2007

PATIENT
  Age: 44 Year
  Sex: Female
  Weight: 45.3597 kg

DRUGS (1)
  1. VIVITROL [Suspect]
     Indication: ALCOHOLISM
     Dosage: (380 MG)
     Dates: start: 20071101

REACTIONS (3)
  - BREAST CANCER [None]
  - INADEQUATE ANALGESIA [None]
  - PROCEDURAL PAIN [None]
